FAERS Safety Report 20617976 (Version 1)
Quarter: 2022Q1

REPORT INFORMATION
  Report Type: Report from Study
  Country: CO (occurrence: CO)
  Receive Date: 20220321
  Receipt Date: 20220321
  Transmission Date: 20220423
  Serious: Yes (Other)
  Sender: FDA-Public Use
  Company Number: CO-ABBVIE-22K-036-4320782-00

PATIENT
  Sex: Female

DRUGS (2)
  1. SKYRIZI [Suspect]
     Active Substance: RISANKIZUMAB-RZAA
     Indication: Psoriasis
     Route: 058
     Dates: start: 20211011
  2. CLONAZEPAM [Concomitant]
     Active Substance: CLONAZEPAM
     Indication: Product used for unknown indication
     Route: 048

REACTIONS (17)
  - Glaucoma [Unknown]
  - Dizziness [Recovering/Resolving]
  - Thyroid disorder [Unknown]
  - Laziness [Recovering/Resolving]
  - Fatigue [Recovering/Resolving]
  - Bone pain [Recovering/Resolving]
  - Weight increased [Recovering/Resolving]
  - Ear pruritus [Not Recovered/Not Resolved]
  - Dry skin [Recovering/Resolving]
  - Dry eye [Not Recovered/Not Resolved]
  - Gastrointestinal infection [Unknown]
  - Sluggishness [Unknown]
  - Dry throat [Unknown]
  - Throat irritation [Unknown]
  - Lip dry [Unknown]
  - Abnormal sensation in eye [Unknown]
  - Ocular discomfort [Not Recovered/Not Resolved]

NARRATIVE: CASE EVENT DATE: 20210101
